FAERS Safety Report 18178669 (Version 1)
Quarter: 2020Q3

REPORT INFORMATION
  Report Type: Spontaneous
  Country: US (occurrence: US)
  Receive Date: 20200820
  Receipt Date: 20200820
  Transmission Date: 20201103
  Serious: No
  Sender: FDA-Public Use
  Company Number: US-JNJFOC-20200818568

PATIENT
  Age: 64 Year
  Sex: Female
  Weight: 73.55 kg

DRUGS (1)
  1. XARELTO [Suspect]
     Active Substance: RIVAROXABAN
     Indication: THROMBOSIS
     Route: 048
     Dates: start: 20200206

REACTIONS (9)
  - Tooth extraction [Unknown]
  - Swelling face [Unknown]
  - Treatment noncompliance [Unknown]
  - Tooth socket haemorrhage [Unknown]
  - Passive smoking [Unknown]
  - Gingival bleeding [Unknown]
  - Dental restoration failure [Unknown]
  - Contusion [Unknown]
  - Vein disorder [Unknown]

NARRATIVE: CASE EVENT DATE: 202008
